FAERS Safety Report 21964775 (Version 22)
Quarter: 2025Q4

REPORT INFORMATION
  Report Type: Spontaneous
  Country: CA (occurrence: CA)
  Receive Date: 20230207
  Receipt Date: 20251216
  Transmission Date: 20260118
  Serious: Yes (Hospitalization, Other)
  Sender: KARYOPHARM THERAPEUTICS
  Company Number: CA-KARYOPHARM THERAPEUTICS, INC.-2023KPT000564

PATIENT

DRUGS (13)
  1. XPOVIO [Suspect]
     Active Substance: SELINEXOR
     Indication: Plasma cell myeloma
     Dosage: 60 MILLIGRAM(S) EVERY 1 WEEK
     Route: 048
  2. XPOVIO [Suspect]
     Active Substance: SELINEXOR
     Dosage: 40 MG 2X/WEEK
     Route: 048
     Dates: start: 20160308
  3. XPOVIO [Suspect]
     Active Substance: SELINEXOR
     Dosage: 60MG ( 20MG X3) EVERY 7 DAYS
     Route: 048
     Dates: start: 202405, end: 202501
  4. XPOVIO [Suspect]
     Active Substance: SELINEXOR
     Dosage: UNK
     Route: 048
     Dates: start: 202404
  5. XPOVIO [Suspect]
     Active Substance: SELINEXOR
     Dosage: 60 MG WEEKLY FOR 5 WEEKS
     Route: 048
     Dates: start: 20230308, end: 202303
  6. XPOVIO [Suspect]
     Active Substance: SELINEXOR
     Dosage: 60 MG WEEKLY
     Route: 048
     Dates: start: 20161004
  7. XPOVIO [Suspect]
     Active Substance: SELINEXOR
     Dosage: 60 MG WEEKLY FOR 5 WEEKS
     Route: 048
     Dates: start: 202311
  8. XPOVIO [Suspect]
     Active Substance: SELINEXOR
     Dosage: 60 MILLIGRAM(S) EVERY 1 WEEK
     Route: 048
     Dates: start: 202506, end: 2025
  9. XPOVIO [Suspect]
     Active Substance: SELINEXOR
     Dosage: 60 MILLIGRAM(S) EVERY 1 WEEK
     Route: 048
     Dates: start: 202511, end: 2025
  10. XPOVIO [Suspect]
     Active Substance: SELINEXOR
     Dosage: 60 MILLIGRAM(S) EVERY 2 WEEK
     Route: 048
     Dates: start: 202511, end: 2025
  11. XPOVIO [Suspect]
     Active Substance: SELINEXOR
     Dosage: 60 MILLIGRAM(S) EVERY 1 WEEK
     Route: 065
     Dates: start: 202511
  12. BORTEZOMIB [Concomitant]
     Active Substance: BORTEZOMIB
     Dosage: UNK
  13. DEXAMETHASONE [Concomitant]
     Active Substance: DEXAMETHASONE
     Dosage: UNK

REACTIONS (20)
  - Upper limb fracture [Unknown]
  - Wrist fracture [Unknown]
  - Fall [Unknown]
  - Infection [Recovered/Resolved]
  - Haemoglobin decreased [Recovering/Resolving]
  - Lymphocyte count decreased [Not Recovered/Not Resolved]
  - Illness [Unknown]
  - Monoclonal immunoglobulin increased [Unknown]
  - Feeling abnormal [Unknown]
  - Cellulitis [Recovered/Resolved]
  - Blood test abnormal [Unknown]
  - Muscle injury [Recovering/Resolving]
  - Neutrophil count decreased [Not Recovered/Not Resolved]
  - Fatigue [Not Recovered/Not Resolved]
  - Decreased appetite [Not Recovered/Not Resolved]
  - Dehydration [Recovering/Resolving]
  - Asthenia [Unknown]
  - Therapy interrupted [Recovered/Resolved]
  - Treatment delayed [Unknown]
  - Product use issue [Unknown]

NARRATIVE: CASE EVENT DATE: 20230101
